FAERS Safety Report 6649732-5 (Version None)
Quarter: 2010Q1

REPORT INFORMATION
  Report Type: 
  Country: None (occurrence: None)
  Receive Date: 20100324
  Receipt Date: 20100324
  Transmission Date: 20100710
  Serious: No
  Sender: FDA-Public Use
  Company Number: None

PATIENT
  Age: 42 Year
  Sex: Male
  Weight: 104.55 kg

DRUGS (1)
  1. PHENYTOIN [Suspect]
     Dosage: IV
     Route: 042
     Dates: start: 20090918, end: 20090922

REACTIONS (1)
  - HAEMORRHAGE [None]
